FAERS Safety Report 10432629 (Version 2)
Quarter: 2014Q3

REPORT INFORMATION
  Report Type: Spontaneous
  Country: FR (occurrence: None)
  Receive Date: 20140903
  Receipt Date: 20140930
  Transmission Date: 20150326
  Serious: Yes (Hospitalization)
  Sender: FDA-Public Use
  Company Number: DEP_02264_2014

PATIENT
  Age: 44 Year
  Sex: Male

DRUGS (5)
  1. DUROGESIC (DUROGESIC) [Concomitant]
     Active Substance: FENTANYL
     Indication: NEURALGIA
     Dosage: (35 MCH/ H  TRANSDERMAL), 12  MCG/ H TRANSDERMAL
     Dates: start: 2013, end: 201311
  2. PECFENT [Suspect]
     Active Substance: FENTANYL CITRATE
     Indication: NEURALGIA
     Dosage: 400 MCG / BOTTLE, (2 PULVERIZTIONS 4 TIMES DAILY) (NASAL)
     Dates: start: 2013
  3. PARACETAMOL [Concomitant]
     Active Substance: ACETAMINOPHEN
  4. ACTIQ [Suspect]
     Active Substance: FENTANYL CITRATE
     Indication: NEURALGIA
     Dosage: 600 DF
     Dates: start: 2013, end: 201311
  5. PECFENT [Suspect]
     Active Substance: FENTANYL CITRATE
     Indication: OFF LABEL USE
     Dosage: 400 MCG / BOTTLE, (2 PULVERIZTIONS 4 TIMES DAILY) (NASAL)
     Dates: start: 2013

REACTIONS (2)
  - Sleep apnoea syndrome [None]
  - Drug ineffective [None]

NARRATIVE: CASE EVENT DATE: 2014
